FAERS Safety Report 24610261 (Version 2)
Quarter: 2024Q4

REPORT INFORMATION
  Report Type: Spontaneous
  Country: FR (occurrence: FR)
  Receive Date: 20241112
  Receipt Date: 20241202
  Transmission Date: 20250115
  Serious: Yes (Hospitalization)
  Sender: FRESENIUS KABI
  Company Number: FR-ROCHE-10000116019

PATIENT
  Age: 65 Year
  Sex: Male

DRUGS (3)
  1. PACLITAXEL [Suspect]
     Active Substance: PACLITAXEL
     Indication: Lung neoplasm malignant
     Dosage: DATE OF LAST ADMINISTRATION OF STUDY TREATMENT 14/OCT/2024?ROUTE OF ADMIN: UNKNOWN
     Dates: start: 20240219
  2. BEVACIZUMAB [Suspect]
     Active Substance: BEVACIZUMAB
     Indication: Lung neoplasm malignant
     Dosage: DATE OF FIRST ADMINISTRATION OF STUDY TREATMENT 19/FEB/2024,??DATE OF LAST ADMINISTRATION OF STUDY T
     Dates: start: 20240219
  3. ATEZOLIZUMAB [Concomitant]
     Active Substance: ATEZOLIZUMAB
     Indication: Lung neoplasm malignant
     Dosage: DATE OF LAST ADMINISTRATION OF STUDY TREATMENT 14/OCT/2024
     Dates: start: 20240219

REACTIONS (1)
  - Cerebrovascular accident [Recovered/Resolved with Sequelae]

NARRATIVE: CASE EVENT DATE: 20241023
